FAERS Safety Report 22021513 (Version 1)
Quarter: 2023Q1

REPORT INFORMATION
  Report Type: Spontaneous
  Country: US (occurrence: US)
  Receive Date: 20230222
  Receipt Date: 20230222
  Transmission Date: 20230418
  Serious: No
  Sender: FDA-Public Use
  Company Number: US-BAYER-2023A020031

PATIENT
  Sex: Female

DRUGS (1)
  1. MIRALAX [Suspect]
     Active Substance: POLYETHYLENE GLYCOL 3350
     Indication: Gastrointestinal disorder
     Dosage: UNK, 1X DOSE DAILY DOSE
     Route: 048
     Dates: start: 2023, end: 20230217

REACTIONS (2)
  - Product use issue [Recovered/Resolved]
  - Product container issue [None]

NARRATIVE: CASE EVENT DATE: 20230101
